FAERS Safety Report 7646401-X (Version None)
Quarter: 2011Q3

REPORT INFORMATION
  Report Type: 
  Country: None (occurrence: None)
  Receive Date: 20110711
  Receipt Date: 20110408
  Transmission Date: 20111222
  Serious: Yes (Other)
  Sender: FDA-Public Use
  Company Number: IPC201104-000590

PATIENT

DRUGS (2)
  1. METOCLOPRAMIDE HYDROCHLORIDE [Suspect]
     Dosage: ORAL
     Route: 048
     Dates: start: 20070301, end: 20100101
  2. REGLAN [Suspect]
     Dosage: ORAL
     Route: 048
     Dates: start: 20070301, end: 20100101

REACTIONS (1)
  - DYSTONIA [None]
